FAERS Safety Report 4384745-8 (Version None)
Quarter: 2004Q2

REPORT INFORMATION
  Report Type: 
  Country: None (occurrence: None)
  Receive Date: 20040624
  Receipt Date: 20040624
  Transmission Date: 20050107
  Serious: Yes (Other)
  Sender: FDA-Public Use
  Company Number: None

PATIENT
  Age: 35 Year
  Sex: Female
  Weight: 49.8957 kg

DRUGS (2)
  1. DURAGESIC [Suspect]
     Indication: INTERVERTEBRAL DISC PROTRUSION
     Dates: start: 20040331, end: 20040415
  2. DURAGESIC [Suspect]

REACTIONS (4)
  - DRUG INEFFECTIVE [None]
  - MALAISE [None]
  - PHARMACEUTICAL PRODUCT COMPLAINT [None]
  - RASH [None]
